FAERS Safety Report 6524323-5 (Version None)
Quarter: 2009Q4

REPORT INFORMATION
  Report Type: 
  Country: None (occurrence: None)
  Receive Date: 20091231
  Receipt Date: 20091229
  Transmission Date: 20100525
  Serious: Yes (Hospitalization, Disabling, Other)
  Sender: FDA-Public Use
  Company Number: US-MERCK-0805USA02816

PATIENT
  Age: 54 Year
  Sex: Female

DRUGS (4)
  1. FOSAMAX [Suspect]
     Indication: OSTEOPOROSIS
     Route: 048
     Dates: start: 20010101, end: 20060401
  2. FOSAMAX [Suspect]
     Indication: OSTEOPENIA
     Route: 048
     Dates: start: 20010101, end: 20060401
  3. FOSAMAX PLUS D [Suspect]
     Indication: OSTEOPENIA
     Route: 065
  4. FOSAMAX PLUS D [Suspect]
     Indication: OSTEOPOROSIS
     Route: 065

REACTIONS (40)
  - ABSCESS [None]
  - ABSCESS NECK [None]
  - ADVERSE DRUG REACTION [None]
  - ADVERSE EVENT [None]
  - ADVERSE REACTION [None]
  - ANXIETY [None]
  - ARTHRALGIA [None]
  - BONE DENSITY DECREASED [None]
  - BONE DISORDER [None]
  - BRONCHITIS [None]
  - COLON CANCER [None]
  - COLON CANCER STAGE I [None]
  - DEPRESSION [None]
  - DEVICE RELATED INFECTION [None]
  - DIARRHOEA [None]
  - DISCOMFORT [None]
  - EDENTULOUS [None]
  - FOOT FRACTURE [None]
  - GASTRITIS [None]
  - GASTROOESOPHAGEAL REFLUX DISEASE [None]
  - HIATUS HERNIA [None]
  - HYPERPLASIA [None]
  - HYPOTHYROIDISM [None]
  - IMPAIRED HEALING [None]
  - INSOMNIA [None]
  - LARYNGEAL DISORDER [None]
  - LOOSE TOOTH [None]
  - LOWER LIMB FRACTURE [None]
  - MASS [None]
  - MUSCLE SPASMS [None]
  - NEOPLASM MALIGNANT [None]
  - OESOPHAGITIS [None]
  - ORAL DISORDER [None]
  - OSTEOARTHRITIS [None]
  - OSTEOMYELITIS [None]
  - PATELLOFEMORAL PAIN SYNDROME [None]
  - PERIODONTAL DISEASE [None]
  - PHARYNGEAL INFLAMMATION [None]
  - POSTOPERATIVE ADHESION [None]
  - SPINAL OSTEOARTHRITIS [None]
